FAERS Safety Report 15877682 (Version 1)
Quarter: 2019Q1

REPORT INFORMATION
  Report Type: Spontaneous
  Country: FR (occurrence: FR)
  Receive Date: 20190128
  Receipt Date: 20190128
  Transmission Date: 20190417
  Serious: Yes (Hospitalization)
  Sender: FDA-Public Use
  Company Number: FR-TEVA-2019-FR-1003715

PATIENT
  Age: 52 Year
  Sex: Male
  Weight: 86 kg

DRUGS (4)
  1. ALPRAZOLAM. [Suspect]
     Active Substance: ALPRAZOLAM
     Indication: TOXICITY TO VARIOUS AGENTS
     Route: 048
     Dates: start: 20181213
  2. OXYNORM 5 MG, G?LULE [Suspect]
     Active Substance: OXYCODONE HYDROCHLORIDE
     Indication: TOXICITY TO VARIOUS AGENTS
     Route: 048
     Dates: start: 20181213
  3. ZOPICLONE [Suspect]
     Active Substance: ZOPICLONE
     Indication: TOXICITY TO VARIOUS AGENTS
     Route: 048
     Dates: start: 20181213
  4. HAVLANE [Suspect]
     Active Substance: LOPRAZOLAM
     Indication: TOXICITY TO VARIOUS AGENTS
     Route: 048
     Dates: start: 20181213

REACTIONS (5)
  - Hypotension [Recovered/Resolved]
  - Miosis [Recovered/Resolved]
  - Bradypnoea [Recovered/Resolved]
  - Intentional overdose [Recovered/Resolved]
  - Somnolence [Recovered/Resolved]

NARRATIVE: CASE EVENT DATE: 20181213
